FAERS Safety Report 9136059 (Version 1)
Quarter: 2013Q1

REPORT INFORMATION
  Report Type: Spontaneous
  Country: US (occurrence: US)
  Receive Date: 20130304
  Receipt Date: 20130304
  Transmission Date: 20140127
  Serious: No
  Sender: FDA-Public Use
  Company Number: US-ABBOTT-12P-163-0916950-00

PATIENT
  Age: 68 Year
  Sex: Male
  Weight: 83.99 kg

DRUGS (2)
  1. ANDROGEL 1% [Suspect]
     Indication: BLOOD TESTOSTERONE DECREASED
     Dosage: FOUR PUMP ACTUATIONS PER DAY
     Dates: start: 2008, end: 201201
  2. ANDROGEL 1% [Suspect]
     Dosage: FIVE PUMP ACTUATIONS PER DAY.
     Dates: start: 201201

REACTIONS (2)
  - Drug ineffective [Not Recovered/Not Resolved]
  - Erectile dysfunction [Not Recovered/Not Resolved]
